FAERS Safety Report 6019463 (Version 24)
Quarter: 2012Q4

REPORT INFORMATION
  Report Type: 
  Country: US (occurrence: US)
  Receive Date: 20060406
  Receipt Date: 20121016
  Transmission Date: 20130627
  Serious: Yes (Hospitalization, Other)
  Sender: FDA-Public Use
  Company Number: PHEH2006US04086

PATIENT
  Age: 54 None
  Sex: Male

DRUGS (29)
  1. AREDIA [Suspect]
     Route: 042
     Dates: start: 199912, end: 200203
  2. ZOMETA [Suspect]
     Indication: MULTIPLE MYELOMA
     Dosage: 4 mg, QMO
     Route: 042
     Dates: start: 2000, end: 20040803
  3. ZOMETA [Suspect]
     Dates: start: 200203, end: 200504
  4. ZOMETA [Suspect]
     Dates: start: 200901
  5. ZOMETA [Suspect]
     Dates: start: 20090910
  6. CHEMOTHERAPEUTICS [Suspect]
  7. DIOVAN ^CIBA-GEIGY^ [Concomitant]
  8. ANTIHISTAMINES [Concomitant]
     Indication: SEASONAL ALLERGY
  9. FLONASE [Concomitant]
  10. LASIX [Concomitant]
  11. ALPHA LIPOIC ACID [Concomitant]
  12. VITAMIN B6 [Concomitant]
  13. VITAMIN E [Concomitant]
  14. THALIDOMIDE [Concomitant]
     Indication: MULTIPLE MYELOMA
     Dosage: 200 mg, QD
  15. COUMADIN [Concomitant]
  16. DECADRON [Concomitant]
     Dosage: 40 mg
  17. STEROIDS NOS [Concomitant]
     Dates: start: 2004, end: 2004
  18. VELCADE [Concomitant]
     Indication: MULTIPLE MYELOMA
  19. SYNTHROID [Concomitant]
  20. TESTIM [Concomitant]
  21. VYTORIN [Concomitant]
  22. PREDNISONE [Concomitant]
  23. CORTISONE [Concomitant]
  24. AVAPRO [Concomitant]
  25. REVLIMID [Concomitant]
  26. CELESTON [Concomitant]
  27. XYLOCAINE [Concomitant]
  28. ATIVAN [Concomitant]
  29. METFORMIN [Concomitant]

REACTIONS (100)
  - Pneumonia [Unknown]
  - Osteonecrosis of jaw [Unknown]
  - Pain [Unknown]
  - Swelling [Unknown]
  - Tooth infection [Unknown]
  - Discomfort [Unknown]
  - Sensitivity of teeth [Unknown]
  - Erythema [Unknown]
  - Osteomyelitis [Unknown]
  - Stomatitis [Unknown]
  - Bone disorder [Unknown]
  - Periodontal disease [Unknown]
  - Dental caries [Unknown]
  - Dry mouth [Unknown]
  - Gingival ulceration [Unknown]
  - Morganella infection [Unknown]
  - Costochondritis [Unknown]
  - Bladder cancer [Unknown]
  - Second primary malignancy [Unknown]
  - Coronary artery disease [Unknown]
  - Hypertension [Unknown]
  - Hypothyroidism [Unknown]
  - Oral candidiasis [Unknown]
  - Deafness [Unknown]
  - Muscle injury [Unknown]
  - Left atrial dilatation [Unknown]
  - Aortic arteriosclerosis [Unknown]
  - Cardiac failure congestive [Unknown]
  - Dyspnoea [Unknown]
  - Neuropathy peripheral [Unknown]
  - Atrial fibrillation [Unknown]
  - Otitis media acute [Unknown]
  - Hypogonadism [Unknown]
  - Metastases to spine [Unknown]
  - Hyperlipidaemia [Unknown]
  - Sick sinus syndrome [Unknown]
  - Aortic valve disease [Unknown]
  - Anaemia [Unknown]
  - Diabetes mellitus [Unknown]
  - Ventricular hypertrophy [Unknown]
  - Spinal cord compression [Unknown]
  - Renal failure [Unknown]
  - Abdominal pain [Unknown]
  - Mental status changes [Unknown]
  - Sacroiliitis [Unknown]
  - Aortic stenosis [Unknown]
  - Subacute endocarditis [Unknown]
  - Bursitis [Unknown]
  - Arthralgia [Unknown]
  - Cellulitis [Unknown]
  - Influenza [Unknown]
  - Bronchitis [Unknown]
  - Tinea pedis [Unknown]
  - Syncope [Unknown]
  - Cardiomegaly [Unknown]
  - Transient ischaemic attack [Unknown]
  - Depression [Unknown]
  - Diabetic neuropathy [Unknown]
  - Mitral valve incompetence [Unknown]
  - Tricuspid valve incompetence [Unknown]
  - Diverticulum intestinal [Unknown]
  - Haemorrhoids [Unknown]
  - Arrhythmia [Unknown]
  - Osteoarthritis [Unknown]
  - Joint dislocation [Unknown]
  - Malignant melanoma [Unknown]
  - Retinal detachment [Unknown]
  - Coagulopathy [Unknown]
  - Mucosal inflammation [Unknown]
  - Tooth fracture [Unknown]
  - Erectile dysfunction [Unknown]
  - Thyroid neoplasm [Unknown]
  - Eye infection [Unknown]
  - IIIrd nerve paralysis [Unknown]
  - Meibomianitis [Unknown]
  - Eyelid infection [Unknown]
  - Rotator cuff syndrome [Unknown]
  - Exostosis [Unknown]
  - Muscle atrophy [Unknown]
  - Intervertebral disc degeneration [Unknown]
  - Bone lesion [Unknown]
  - Spondylolisthesis [Unknown]
  - Vertebral foraminal stenosis [Unknown]
  - Intervertebral disc protrusion [Unknown]
  - Facet joint syndrome [Unknown]
  - Joint stiffness [Unknown]
  - Joint effusion [Unknown]
  - Joint crepitation [Unknown]
  - Cataract [Unknown]
  - Corneal opacity [Unknown]
  - Eye pruritus [Unknown]
  - Eye pain [Unknown]
  - Eye discharge [Unknown]
  - Otorrhoea [Unknown]
  - Superficial injury of eye [Unknown]
  - Lacrimation increased [Unknown]
  - Pollakiuria [Unknown]
  - Nephrolithiasis [Unknown]
  - Tremor [Unknown]
  - Corneal oedema [Unknown]
